FAERS Safety Report 4966732-1 (Version None)
Quarter: 2006Q1

REPORT INFORMATION
  Report Type: 
  Country: None (occurrence: None)
  Receive Date: 20060201
  Receipt Date: 20051220
  Transmission Date: 20060701
  Serious: No
  Sender: FDA-Public Use
  Company Number: 2005PV006088

PATIENT
  Age: 63 Year
  Sex: Female
  Weight: 63.5036 kg

DRUGS (4)
  1. BYETTA [Suspect]
     Indication: DIABETES MELLITUS NON-INSULIN-DEPENDENT
     Dosage: 5 MCG;BID;SC
     Route: 058
     Dates: start: 20051216, end: 20051219
  2. METFORMIN [Concomitant]
  3. GLIPIZIDE [Concomitant]
  4. LIPITOR [Concomitant]

REACTIONS (7)
  - BLOOD GLUCOSE DECREASED [None]
  - BURNING SENSATION [None]
  - CHILLS [None]
  - NAUSEA [None]
  - PYREXIA [None]
  - RHINORRHOEA [None]
  - TREMOR [None]
